FAERS Safety Report 15876774 (Version 2)
Quarter: 2019Q1

REPORT INFORMATION
  Report Type: Report from Study
  Country: None (occurrence: US)
  Receive Date: 20190127
  Receipt Date: 20190214
  Transmission Date: 20190417
  Serious: Yes (Other)
  Sender: FDA-Public Use
  Company Number: US-ABBVIE-19K-163-2636269-00

PATIENT
  Age: 69 Year
  Sex: Female

DRUGS (2)
  1. HUMIRA [Suspect]
     Active Substance: ADALIMUMAB
     Indication: CROHN^S DISEASE
     Route: 058
     Dates: start: 20180528, end: 201806
  2. HUMIRA [Suspect]
     Active Substance: ADALIMUMAB
     Route: 058
     Dates: start: 201806, end: 201807

REACTIONS (4)
  - Gastrointestinal disorder [Unknown]
  - Weight increased [Not Recovered/Not Resolved]
  - Drug ineffective [Recovered/Resolved]
  - Neuropathy peripheral [Unknown]

NARRATIVE: CASE EVENT DATE: 2018
